FAERS Safety Report 6325882-8 (Version None)
Quarter: 2009Q3

REPORT INFORMATION
  Report Type: 
  Country: None (occurrence: None)
  Receive Date: 20090824
  Receipt Date: 20090812
  Transmission Date: 20100115
  Serious: Yes (Other)
  Sender: FDA-Public Use
  Company Number: GB-MERCK-0906GBR00108

PATIENT
  Age: 56 Year
  Sex: Male

DRUGS (6)
  1. ZOCOR [Suspect]
     Route: 048
     Dates: start: 20071207, end: 20080201
  2. ZETIA [Suspect]
     Route: 048
     Dates: start: 20080305, end: 20090107
  3. PRAVASTATIN SODIUM [Suspect]
     Route: 065
     Dates: start: 20080201, end: 20080305
  4. VIAGRA [Suspect]
     Indication: ERECTILE DYSFUNCTION
     Route: 048
     Dates: start: 20010307
  5. ASPIRIN [Concomitant]
     Indication: CARDIOVASCULAR DISORDER
     Route: 065
     Dates: start: 20080118
  6. TROSPIUM CHLORIDE [Concomitant]
     Indication: URINARY TRACT INFECTION
     Route: 065
     Dates: start: 20010307

REACTIONS (4)
  - BLOOD PRESSURE ABNORMAL [None]
  - DRUG INEFFECTIVE [None]
  - DRUG INTERACTION [None]
  - ERECTILE DYSFUNCTION [None]
